FAERS Safety Report 8553755-9 (Version None)
Quarter: 2012Q3

REPORT INFORMATION
  Report Type: 
  Country: None (occurrence: None)
  Receive Date: 20120731
  Receipt Date: 20120723
  Transmission Date: 20120928
  Serious: Yes (Death)
  Sender: FDA-Public Use
  Company Number: US-GLAXOSMITHKLINE-A0987466A

PATIENT
  Age: 62 Year
  Sex: Male

DRUGS (18)
  1. ZOFRAN [Concomitant]
  2. CALCIUM [Concomitant]
  3. KLOR-CON [Concomitant]
  4. MORPHINE SULFATE [Concomitant]
  5. ASPIRIN [Concomitant]
  6. FLUOXETINE HCL [Concomitant]
  7. FENTANYL CITRATE [Concomitant]
  8. FUROSEMIDE [Concomitant]
  9. ISOSORBIDE [Concomitant]
  10. HYCAMTIN [Suspect]
     Indication: PRODUCT USED FOR UNKNOWN INDICATION
     Dosage: 5.75MG PER DAY
     Route: 048
     Dates: start: 20120430, end: 20120701
  11. MAGNESIUM [Concomitant]
  12. METFORMIN HYDROCHLORIDE [Concomitant]
  13. PRAVASTATIN [Concomitant]
  14. PLAVIX [Concomitant]
  15. MIRALAX [Concomitant]
  16. LISINOPRIL [Concomitant]
  17. GABAPENTIN [Concomitant]
  18. FENOFIBRATE [Concomitant]

REACTIONS (1)
  - DEATH [None]
